FAERS Safety Report 13734948 (Version 1)
Quarter: 2017Q3

REPORT INFORMATION
  Report Type: Spontaneous
  Country: FR (occurrence: FR)
  Receive Date: 20170710
  Receipt Date: 20170710
  Transmission Date: 20171127
  Serious: Yes (Other)
  Sender: FDA-Public Use
  Company Number: FR-ROCHE-1960246

PATIENT
  Age: 45 Year
  Sex: Female

DRUGS (7)
  1. PREDNISONE. [Concomitant]
     Active Substance: PREDNISONE
  2. RIMACTAN [Concomitant]
     Active Substance: RIFAMPIN
     Indication: TUBERCULIN TEST POSITIVE
     Route: 065
     Dates: start: 20170316, end: 20170615
  3. RIMIFON [Concomitant]
     Active Substance: ISONIAZID
     Indication: TUBERCULIN TEST POSITIVE
     Route: 065
     Dates: start: 20170316, end: 20170615
  4. FLUOXETINE [Concomitant]
     Active Substance: FLUOXETINE HYDROCHLORIDE
     Route: 065
     Dates: start: 201705
  5. MABTHERA [Suspect]
     Active Substance: RITUXIMAB
     Route: 042
     Dates: start: 20170404
  6. SOLU-MEDROL [Concomitant]
     Active Substance: METHYLPREDNISOLONE SODIUM SUCCINATE
     Route: 065
     Dates: start: 201610, end: 201702
  7. MABTHERA [Suspect]
     Active Substance: RITUXIMAB
     Indication: MYELITIS
     Dosage: ONE COURSE SCHEDULED IN OCT/2017
     Route: 042
     Dates: start: 20170320

REACTIONS (3)
  - Product use in unapproved indication [Unknown]
  - Breast cancer [Not Recovered/Not Resolved]
  - Off label use [Unknown]

NARRATIVE: CASE EVENT DATE: 201705
